FAERS Safety Report 21660185 (Version 1)
Quarter: 2022Q4

REPORT INFORMATION
  Report Type: Spontaneous
  Country: US (occurrence: US)
  Receive Date: 20221130
  Receipt Date: 20221130
  Transmission Date: 20230113
  Serious: No
  Sender: FDA-Public Use
  Company Number: US-BEH-2022152514

PATIENT
  Sex: Female
  Weight: 52.154 kg

DRUGS (2)
  1. HAEGARDA [Suspect]
     Active Substance: HUMAN C1-ESTERASE INHIBITOR
     Indication: Hereditary angioedema
     Dosage: 3000 INTERNATIONAL UNIT, EVERY 3 DAYS
     Route: 065
     Dates: start: 20200929
  2. HAEGARDA [Suspect]
     Active Substance: HUMAN C1-ESTERASE INHIBITOR
     Indication: Prophylaxis
     Dosage: UNK INTERNATIONAL UNIT
     Route: 065

REACTIONS (6)
  - Herpes zoster [Unknown]
  - Malaise [Unknown]
  - Device issue [Unknown]
  - Device leakage [Unknown]
  - Device defective [Unknown]
  - Product preparation issue [Unknown]
